FAERS Safety Report 8237084-9 (Version None)
Quarter: 2012Q1

REPORT INFORMATION
  Report Type: 
  Country: None (occurrence: None)
  Receive Date: 20120327
  Receipt Date: 20120319
  Transmission Date: 20120608
  Serious: Yes (Other)
  Sender: FDA-Public Use
  Company Number: JP-PFIZER INC-2012072708

PATIENT
  Age: 85 Year
  Sex: Male

DRUGS (2)
  1. LYRICA [Suspect]
     Indication: VERTEBRAL FORAMINAL STENOSIS
     Dosage: 25 MG, 2X/DAY
     Route: 048
  2. LYRICA [Suspect]
     Dosage: 75MG, DAILY
     Route: 048

REACTIONS (2)
  - EYELID OEDEMA [None]
  - EYE HAEMORRHAGE [None]
